FAERS Safety Report 9416316 (Version 1)
Quarter: 2013Q3

REPORT INFORMATION
  Report Type: Spontaneous
  Country: US (occurrence: US)
  Receive Date: 20130724
  Receipt Date: 20130724
  Transmission Date: 20140515
  Serious: Yes (Other)
  Sender: FDA-Public Use
  Company Number: US-SANOFI-AVENTIS-2013SA073800

PATIENT
  Sex: Female

DRUGS (2)
  1. LANTUS SOLOSTAR [Suspect]
     Route: 065
  2. SOLOSTAR [Suspect]
     Route: 065

REACTIONS (4)
  - Road traffic accident [Unknown]
  - Joint injury [Unknown]
  - Limb injury [Unknown]
  - Limb injury [Unknown]
